FAERS Safety Report 9604332 (Version 1)
Quarter: 2013Q4

REPORT INFORMATION
  Report Type: Report from Study
  Country: US (occurrence: US)
  Receive Date: 20131008
  Receipt Date: 20131008
  Transmission Date: 20140711
  Serious: Yes (Other)
  Sender: FDA-Public Use
  Company Number: US-JNJFOC-20131002432

PATIENT
  Sex: 0

DRUGS (3)
  1. REMICADE [Suspect]
     Indication: COLITIS ULCERATIVE
     Route: 042
  2. STEROIDS NOS [Suspect]
     Indication: PRODUCT USED FOR UNKNOWN INDICATION
     Route: 065
  3. COLAZAL [Concomitant]
     Route: 065

REACTIONS (4)
  - Type 2 diabetes mellitus [Unknown]
  - Osteoarthritis [Unknown]
  - Osteonecrosis [Unknown]
  - Basedow^s disease [Unknown]
